FAERS Safety Report 13182294 (Version 2)
Quarter: 2018Q3

REPORT INFORMATION
  Report Type: Spontaneous
  Country: BR (occurrence: BR)
  Receive Date: 20170202
  Receipt Date: 20180727
  Transmission Date: 20181010
  Serious: Yes (Other)
  Sender: FDA-Public Use
  Company Number: BR-ALEXION PHARMACEUTICALS INC.-A201700775

PATIENT
  Age: 1 Year
  Sex: Male
  Weight: 14.2 kg

DRUGS (2)
  1. SOLIRIS [Suspect]
     Active Substance: ECULIZUMAB
     Indication: HAEMOLYTIC URAEMIC SYNDROME
     Dosage: 300 MG, EVERY 21 DAYS
     Route: 065
  2. SOLIRIS [Suspect]
     Active Substance: ECULIZUMAB
     Dosage: 300 MG, EVERY 14 DAYS
     Route: 065

REACTIONS (5)
  - Neutropenia [Recovered/Resolved]
  - Pyrexia [Unknown]
  - Inappropriate schedule of drug administration [Recovered/Resolved]
  - Leukopenia [Recovered/Resolved]
  - Viral rash [Recovered/Resolved]

NARRATIVE: CASE EVENT DATE: 201701
